FAERS Safety Report 19578384 (Version 4)
Quarter: 2022Q1

REPORT INFORMATION
  Report Type: Report from Study
  Country: US (occurrence: US)
  Receive Date: 20210719
  Receipt Date: 20220209
  Transmission Date: 20220423
  Serious: Yes (Other)
  Sender: FDA-Public Use
  Company Number: US-TAKEDA-US201903511

PATIENT
  Age: 60 Year
  Sex: Male
  Weight: 117 kg

DRUGS (14)
  1. HUMAN IMMUNOGLOBULIN G [Suspect]
     Active Substance: HUMAN IMMUNOGLOBULIN G
     Indication: Primary immunodeficiency syndrome
     Dosage: 50 GRAM, MONTHLY
     Route: 042
  2. HUMAN IMMUNOGLOBULIN G [Suspect]
     Active Substance: HUMAN IMMUNOGLOBULIN G
     Indication: Primary immunodeficiency syndrome
     Dosage: 50 GRAM, MONTHLY
     Route: 042
  3. HUMAN IMMUNOGLOBULIN G [Suspect]
     Active Substance: HUMAN IMMUNOGLOBULIN G
     Indication: Immunodeficiency common variable
     Dosage: 60 GRAM, Q4WEEKS
     Route: 042
     Dates: start: 20220121
  4. HUMAN IMMUNOGLOBULIN G [Suspect]
     Active Substance: HUMAN IMMUNOGLOBULIN G
     Indication: Immunodeficiency common variable
     Dosage: 60 GRAM, Q4WEEKS
     Route: 042
     Dates: start: 20220121
  5. DIPHENHYDRAMINE HYDROCHLORIDE [Concomitant]
     Active Substance: DIPHENHYDRAMINE HYDROCHLORIDE
  6. VITAMINS [Concomitant]
     Active Substance: VITAMINS
     Dosage: UNK, QD
  7. VITAMIN D3 [Concomitant]
     Active Substance: CHOLECALCIFEROL
  8. EPINEPHRINE [Concomitant]
     Active Substance: EPINEPHRINE
  9. SODIUM CHLORIDE [Concomitant]
     Active Substance: SODIUM CHLORIDE
  10. ACETAMINOPHEN [Concomitant]
     Active Substance: ACETAMINOPHEN
  11. SODIUM CHLORIDE [Concomitant]
     Active Substance: SODIUM CHLORIDE
  12. SOLU-CORTEF [Concomitant]
     Active Substance: HYDROCORTISONE SODIUM SUCCINATE
  13. GLUCOSAMINE [Concomitant]
     Active Substance: GLUCOSAMINE
  14. VITAMIN B [Concomitant]
     Active Substance: VITAMIN B

REACTIONS (5)
  - Sinusitis [Recovering/Resolving]
  - Nasopharyngitis [Unknown]
  - Renal cancer [Unknown]
  - Non-Hodgkin^s lymphoma [Unknown]
  - COVID-19 [Unknown]

NARRATIVE: CASE EVENT DATE: 20220128
